FAERS Safety Report 13219405 (Version 1)
Quarter: 2017Q1

REPORT INFORMATION
  Report Type: Spontaneous
  Country: TH (occurrence: TH)
  Receive Date: 20170210
  Receipt Date: 20170210
  Transmission Date: 20170428
  Serious: Yes (Other)
  Sender: FDA-Public Use
  Company Number: TH-ALEMBIC PHARMACUETICALS LIMITED-2017SCAL000099

PATIENT

DRUGS (4)
  1. DONEPEZIL HYDROCHLORIDE. [Suspect]
     Active Substance: DONEPEZIL HYDROCHLORIDE
     Dosage: 10 MG, QD FOR 8 WEEKS
  2. DONEPEZIL HYDROCHLORIDE. [Suspect]
     Active Substance: DONEPEZIL HYDROCHLORIDE
     Dosage: 15 MG, QD FOR 3 MONTHS
  3. DONEPEZIL HYDROCHLORIDE. [Suspect]
     Active Substance: DONEPEZIL HYDROCHLORIDE
     Indication: DEMENTIA ALZHEIMER^S TYPE
     Dosage: 10 MG, QD FOR 2 YEARS
  4. DONEPEZIL HYDROCHLORIDE. [Suspect]
     Active Substance: DONEPEZIL HYDROCHLORIDE
     Dosage: 23 MG, QD

REACTIONS (2)
  - Weight decreased [Unknown]
  - Parkinsonism [Recovering/Resolving]
